FAERS Safety Report 20240115 (Version 2)
Quarter: 2022Q1

REPORT INFORMATION
  Report Type: Spontaneous
  Country: US (occurrence: US)
  Receive Date: 20211228
  Receipt Date: 20220214
  Transmission Date: 20220423
  Serious: Yes (Hospitalization)
  Sender: FDA-Public Use
  Company Number: US-RIGEL PHARMACEUTICALS, INC.-2021FOS000859

PATIENT
  Age: 44 Year
  Sex: Female

DRUGS (1)
  1. TAVALISSE [Suspect]
     Active Substance: FOSTAMATINIB
     Indication: Immune thrombocytopenia
     Dosage: 100 MG, BID
     Route: 048
     Dates: start: 2021

REACTIONS (1)
  - Hepatectomy [Unknown]

NARRATIVE: CASE EVENT DATE: 20211201
